FAERS Safety Report 11120487 (Version 1)
Quarter: 2015Q2

REPORT INFORMATION
  Report Type: Spontaneous
  Country: US (occurrence: US)
  Receive Date: 20150518
  Receipt Date: 20150518
  Transmission Date: 20150821
  Serious: Yes (Life-Threatening, Hospitalization, Congenital Anomaly, Other)
  Sender: FDA-Public Use
  Company Number: US-ELI_LILLY_AND_COMPANY-US201304008022

PATIENT
  Age: 1 Year

DRUGS (3)
  1. PRENATAL VITAMINS                  /08195401/ [Concomitant]
     Dosage: 1 DF, UNKNOWN
     Route: 064
  2. FLONASE [Concomitant]
     Active Substance: FLUTICASONE PROPIONATE
     Dosage: 1 DF, UNKNOWN
     Route: 064
     Dates: start: 19991005
  3. PROZAC [Suspect]
     Active Substance: FLUOXETINE HYDROCHLORIDE
     Indication: PRODUCT USED FOR UNKNOWN INDICATION
     Dosage: 20 MG, UNKNOWN
     Route: 064

REACTIONS (7)
  - Transposition of the great vessels [Unknown]
  - Congenital tricuspid valve atresia [Unknown]
  - Congenital aortic atresia [Unknown]
  - Neonatal respiratory distress syndrome [Unknown]
  - Cardiogenic shock [Unknown]
  - Cough [Unknown]
  - Foetal exposure during pregnancy [Recovered/Resolved]

NARRATIVE: CASE EVENT DATE: 20011114
